FAERS Safety Report 8060360-X (Version None)
Quarter: 2012Q1

REPORT INFORMATION
  Report Type: 
  Country: None (occurrence: None)
  Receive Date: 20120119
  Receipt Date: 20120119
  Transmission Date: 20120608
  Serious: Yes (Hospitalization)
  Sender: FDA-Public Use
  Company Number: None

PATIENT
  Age: 54 Year
  Sex: Male
  Weight: 82.6 kg

DRUGS (16)
  1. LISINOPRIL [Concomitant]
  2. DOCUSATE SODIUM [Concomitant]
  3. PLAVIX [Suspect]
     Indication: CORONARY ARTERY DISEASE
     Dosage: 75MG DAILY PO CHRONIC
     Route: 048
  4. METFORMIN HYDROCHLORIDE [Concomitant]
  5. HYDROCHLOROTHIAZIDE [Concomitant]
  6. GEMFIBROZIL [Concomitant]
  7. LANTUS [Concomitant]
  8. RANITIDINE [Concomitant]
  9. KETOCONAZOLE [Concomitant]
  10. SERTRALINE HYDROCHLORIDE [Concomitant]
  11. NOVOLIN R [Concomitant]
  12. LOVASTATIN [Concomitant]
  13. AMLODIPINE [Concomitant]
  14. ASPIRIN [Suspect]
     Indication: CORONARY ARTERY DISEASE
     Dosage: 81MG DAILY PO CHRONIC
     Route: 048
  15. OXYCODONE HCL AND ACETAMINOPHEN [Concomitant]
  16. FIBER TAB [Concomitant]

REACTIONS (5)
  - ANAEMIA [None]
  - LARGE INTESTINAL HAEMORRHAGE [None]
  - CLOSTRIDIUM TEST POSITIVE [None]
  - DIARRHOEA [None]
  - PYREXIA [None]
